FAERS Safety Report 25336052 (Version 1)
Quarter: 2025Q2

REPORT INFORMATION
  Report Type: Spontaneous
  Country: FR (occurrence: FR)
  Receive Date: 20250520
  Receipt Date: 20250520
  Transmission Date: 20250717
  Serious: Yes (Congenital Anomaly)
  Sender: GLAXOSMITHKLINE
  Company Number: None

PATIENT

DRUGS (12)
  1. SERETIDE [Suspect]
     Active Substance: FLUTICASONE PROPIONATE\SALMETEROL XINAFOATE
     Indication: Cystic fibrosis
     Dosage: 1000 MG, QD (250 MG 4 TIMES/DAY THEN 2 TIMES/DAY)
     Route: 064
     Dates: end: 20230324
  2. ALBUTEROL [Suspect]
     Active Substance: ALBUTEROL
     Indication: Cystic fibrosis
     Route: 064
     Dates: end: 20230324
  3. ELEXACAFTOR [Suspect]
     Active Substance: ELEXACAFTOR
     Indication: Cystic fibrosis
     Route: 064
     Dates: start: 20230113, end: 20230324
  4. TEZACAFTOR [Suspect]
     Active Substance: TEZACAFTOR
     Indication: Cystic fibrosis
     Route: 064
     Dates: start: 20230113, end: 20230324
  5. IVACAFTOR [Suspect]
     Active Substance: IVACAFTOR
     Indication: Cystic fibrosis
     Route: 064
     Dates: start: 20230113, end: 20230324
  6. COLISTIMETHATE SODIUM [Suspect]
     Active Substance: COLISTIMETHATE SODIUM
     Indication: Pneumonia pseudomonal
     Dosage: 4 MILLION IU, QD (2 MU 2 TIMES/DAY)
     Route: 064
     Dates: end: 20230324
  7. TOBI [Suspect]
     Active Substance: TOBRAMYCIN
     Indication: Pneumonia pseudomonal
     Dosage: 600 MG, QD (300 MG TWICE A DAY)
     Route: 064
     Dates: end: 20230324
  8. LEVOTHYROXINE [Suspect]
     Active Substance: LEVOTHYROXINE
     Indication: Hypothyroidism
     Dosage: 75 ?G, QD
     Route: 064
     Dates: end: 20230324
  9. FERROUS FUMARATE [Suspect]
     Active Substance: FERROUS FUMARATE
     Indication: Anaemia
     Dosage: 1 DF, QD
     Route: 064
     Dates: end: 20230324
  10. CREON [Suspect]
     Active Substance: PANCRELIPASE AMYLASE\PANCRELIPASE LIPASE\PANCRELIPASE PROTEASE
     Indication: Cystic fibrosis
     Dosage: 25000 MILLION IU, QD
     Route: 064
     Dates: end: 20230324
  11. PANTOPRAZOLE [Suspect]
     Active Substance: PANTOPRAZOLE
     Indication: Cystic fibrosis
     Dosage: 1 DF, QD
     Route: 064
     Dates: end: 20230324
  12. POLYETHYLENE GLYCOL 4000 [Suspect]
     Active Substance: POLYETHYLENE GLYCOL 4000
     Indication: Constipation
     Dosage: 3 DF, WE
     Route: 065
     Dates: end: 20230324

REACTIONS (2)
  - Pelvic kidney [Recovered/Resolved with Sequelae]
  - Foetal exposure during pregnancy [Unknown]

NARRATIVE: CASE EVENT DATE: 20230324
